FAERS Safety Report 23066359 (Version 1)
Quarter: 2023Q4

REPORT INFORMATION
  Report Type: Spontaneous
  Country: US (occurrence: US)
  Receive Date: 20231015
  Receipt Date: 20231015
  Transmission Date: 20240110
  Serious: Yes (Other)
  Sender: FDA-Public Use
  Company Number: US-TEVA-2023-US-2936296

PATIENT
  Age: 21 Year
  Sex: Male

DRUGS (2)
  1. UZEDY [Suspect]
     Active Substance: RISPERIDONE
     Indication: Schizophrenia
     Dosage: STRENGTH: 200MG/0.56ML
     Route: 058
     Dates: end: 20230823
  2. UZEDY [Suspect]
     Active Substance: RISPERIDONE
     Dosage: STRENGTH: 200MG/0.56ML
     Route: 058
     Dates: start: 2023

REACTIONS (1)
  - Dystonia [Unknown]
